FAERS Safety Report 7726152-3 (Version None)
Quarter: 2011Q3

REPORT INFORMATION
  Report Type: 
  Country: None (occurrence: None)
  Receive Date: 20110902
  Receipt Date: 20110824
  Transmission Date: 20111222
  Serious: Yes (Death, Hospitalization)
  Sender: FDA-Public Use
  Company Number: FR-JNJFOC-20110510590

PATIENT
  Sex: Male
  Weight: 78 kg

DRUGS (11)
  1. DURAGESIC-100 [Suspect]
     Indication: PAIN
  2. RIBAVIRIN [Suspect]
     Indication: HEPATITIS C
     Route: 048
     Dates: start: 20110422, end: 20110515
  3. DICETEL [Concomitant]
  4. TELAPREVIR [Suspect]
     Indication: HEPATITIS C
     Route: 048
     Dates: start: 20110422, end: 20110515
  5. ACETAMINOPHEN [Concomitant]
  6. PEGINTERFERON ALFA-2A [Suspect]
     Indication: HEPATITIS C
     Route: 058
     Dates: start: 20110422, end: 20110515
  7. LEVOTHYROXINE SODIUM [Concomitant]
     Indication: HYPOTHYROIDISM
  8. METFORMIN HCL [Concomitant]
     Indication: DIABETES MELLITUS
     Route: 048
  9. DIAMICRON [Concomitant]
     Indication: DIABETES MELLITUS
     Route: 048
  10. SMECTA [Concomitant]
  11. MYOLASTAN [Concomitant]

REACTIONS (6)
  - HYPERKALAEMIA [None]
  - METABOLIC ACIDOSIS [None]
  - MULTI-ORGAN FAILURE [None]
  - SEPTIC SHOCK [None]
  - RENAL FAILURE [None]
  - URINARY TRACT INFECTION STAPHYLOCOCCAL [None]
